FAERS Safety Report 20687143 (Version 5)
Quarter: 2022Q4

REPORT INFORMATION
  Report Type: Report from Study
  Country: TH (occurrence: TH)
  Receive Date: 20220407
  Receipt Date: 20221006
  Transmission Date: 20230112
  Serious: Yes (Hospitalization, Other)
  Sender: FDA-Public Use
  Company Number: TH-CELLTRION INC.-2022TH004162

PATIENT

DRUGS (5)
  1. INFLIXIMAB [Suspect]
     Active Substance: INFLIXIMAB
     Indication: Juvenile idiopathic arthritis
     Dosage: 200 MG Q 8 WEEK
     Route: 042
     Dates: start: 20210807
  2. INFLIXIMAB [Suspect]
     Active Substance: INFLIXIMAB
     Dosage: 200 MILLIGRAM EVERY 8 WEEKS.
     Dates: start: 20220331
  3. PREDNISOLONE [Concomitant]
     Active Substance: PREDNISOLONE
     Indication: Immunosuppressant drug therapy
     Dosage: 5 MG, 2 TABS IN THE MORNING
  4. METHOTREXATE [Concomitant]
     Active Substance: METHOTREXATE
     Indication: Immunosuppressant drug therapy
     Dosage: 2.5 MG, 6 TABS EVERY SATURDAY
  5. FOLIC ACID [Concomitant]
     Active Substance: FOLIC ACID
     Indication: Immunosuppressant drug therapy
     Dosage: 5 MG, 1 TAB IN THE MORNING

REACTIONS (6)
  - Bacterial infection [Recovering/Resolving]
  - Wound [Not Recovered/Not Resolved]
  - Cyst [Not Recovered/Not Resolved]
  - COVID-19 [Recovering/Resolving]
  - Intentional dose omission [Recovering/Resolving]
  - Off label use [Unknown]
